FAERS Safety Report 6659862-X (Version None)
Quarter: 2010Q1

REPORT INFORMATION
  Report Type: 
  Country: None (occurrence: None)
  Receive Date: 20100330
  Receipt Date: 20100330
  Transmission Date: 20100710
  Serious: Yes (Life-Threatening, Hospitalization)
  Sender: FDA-Public Use
  Company Number: None

PATIENT
  Age: 65 Year
  Sex: Male

DRUGS (1)
  1. LABETALOL HCL [Suspect]
     Dosage: 20 MG ONCE IV
     Route: 042
     Dates: start: 20091228, end: 20091228

REACTIONS (1)
  - BRONCHOSPASM [None]
